FAERS Safety Report 15712304 (Version 1)
Quarter: 2018Q4

REPORT INFORMATION
  Report Type: Report from Study
  Country: None (occurrence: US)
  Receive Date: 20181212
  Receipt Date: 20181212
  Transmission Date: 20190205
  Serious: Yes (Other)
  Sender: FDA-Public Use
  Company Number: US-ABBVIE-18K-163-2434229-00

PATIENT
  Age: 49 Year
  Sex: Female
  Weight: 59.02 kg

DRUGS (6)
  1. HUMIRA [Suspect]
     Active Substance: ADALIMUMAB
     Route: 058
     Dates: start: 20180821, end: 2018
  2. HUMIRA [Suspect]
     Active Substance: ADALIMUMAB
     Dosage: DAY 15.
     Route: 058
     Dates: start: 201805, end: 201805
  3. HUMIRA [Suspect]
     Active Substance: ADALIMUMAB
     Dosage: DAY 29.
     Route: 058
     Dates: start: 201805, end: 201805
  4. HUMIRA [Suspect]
     Active Substance: ADALIMUMAB
     Indication: CROHN^S DISEASE
     Route: 058
     Dates: start: 201811
  5. HUMIRA [Suspect]
     Active Substance: ADALIMUMAB
     Indication: CROHN^S DISEASE
     Dosage: DAY 1
     Route: 058
     Dates: start: 201805, end: 201805
  6. BALSALAZIDE [Concomitant]
     Active Substance: BALSALAZIDE
     Indication: COLITIS
     Route: 048

REACTIONS (25)
  - Injection site pruritus [Unknown]
  - Injection site erythema [Unknown]
  - Intervertebral disc protrusion [Not Recovered/Not Resolved]
  - Hypoaesthesia [Not Recovered/Not Resolved]
  - Injection site bruising [Unknown]
  - Neck pain [Not Recovered/Not Resolved]
  - Weight decreased [Recovering/Resolving]
  - Diarrhoea [Recovering/Resolving]
  - Injection site swelling [Unknown]
  - Arthralgia [Not Recovered/Not Resolved]
  - Injection site warmth [Unknown]
  - Abdominal pain [Recovering/Resolving]
  - Paraesthesia [Not Recovered/Not Resolved]
  - Joint swelling [Not Recovered/Not Resolved]
  - Injection site reaction [Unknown]
  - Loose body in joint [Recovering/Resolving]
  - Injection site induration [Unknown]
  - Injection site mass [Unknown]
  - Injection site rash [Unknown]
  - Device issue [Unknown]
  - Insomnia [Not Recovered/Not Resolved]
  - Insomnia [Recovering/Resolving]
  - Injection site urticaria [Recovering/Resolving]
  - Intervertebral disc protrusion [Not Recovered/Not Resolved]
  - Injection site papule [Unknown]

NARRATIVE: CASE EVENT DATE: 2018
